FAERS Safety Report 9259521 (Version 3)
Quarter: 2013Q2

REPORT INFORMATION
  Report Type: Spontaneous
  Country: US (occurrence: US)
  Receive Date: 20130429
  Receipt Date: 20130621
  Transmission Date: 20140414
  Serious: Yes (Hospitalization, Other)
  Sender: FDA-Public Use
  Company Number: US-009507513-1304USA015822

PATIENT
  Sex: Male

DRUGS (4)
  1. REBETOL [Suspect]
     Indication: CHRONIC HEPATITIS C
     Dosage: UNK
     Route: 048
     Dates: start: 20130327
  2. VICTRELIS [Suspect]
     Indication: CHRONIC HEPATITIS C
     Dosage: UNK
     Route: 048
     Dates: start: 20130426, end: 20130517
  3. PEGASYS [Suspect]
     Indication: CHRONIC HEPATITIS C
     Dosage: 185 MICROGRAM, QW
     Dates: start: 20130329, end: 2013
  4. PEGASYS [Suspect]
     Dosage: 135 MICROGRAM, QW
     Dates: start: 2013, end: 20130517

REACTIONS (7)
  - Confusional state [Unknown]
  - Confusional state [Unknown]
  - Convulsion [Unknown]
  - Visual impairment [Unknown]
  - Adverse event [Unknown]
  - Asthenia [Unknown]
  - Fatigue [Unknown]
